FAERS Safety Report 10252855 (Version 5)
Quarter: 2014Q3

REPORT INFORMATION
  Report Type: Spontaneous
  Country: BR (occurrence: BR)
  Receive Date: 20140623
  Receipt Date: 20140821
  Transmission Date: 20150326
  Serious: Yes (Other)
  Sender: FDA-Public Use
  Company Number: BR-PFIZER INC-2014093701

PATIENT
  Age: 59 Year
  Sex: Male
  Weight: 56 kg

DRUGS (2)
  1. SUTENT [Suspect]
     Active Substance: SUNITINIB MALATE
     Indication: RENAL CELL CARCINOMA
     Dosage: 50 MG, CYCLIC (ONCE DAILY CYCLE 4/2)
     Route: 048
     Dates: start: 20140220, end: 2014
  2. SUTENT [Suspect]
     Active Substance: SUNITINIB MALATE
     Dosage: UNK
     Dates: start: 2014

REACTIONS (15)
  - Eye swelling [Unknown]
  - Hypophagia [Not Recovered/Not Resolved]
  - Subcutaneous abscess [Unknown]
  - Blister [Unknown]
  - Pruritus [Unknown]
  - Epistaxis [Unknown]
  - Dysgeusia [Unknown]
  - Rhinorrhoea [Unknown]
  - Ageusia [Unknown]
  - Rhinitis [Unknown]
  - Skin exfoliation [Unknown]
  - Weight increased [Unknown]
  - Fistula [Unknown]
  - Abdominal pain upper [Unknown]
  - Anaemia [Not Recovered/Not Resolved]

NARRATIVE: CASE EVENT DATE: 2014
